FAERS Safety Report 8072264-7 (Version None)
Quarter: 2012Q1

REPORT INFORMATION
  Report Type: 
  Country: None (occurrence: None)
  Receive Date: 20120126
  Receipt Date: 20120124
  Transmission Date: 20120608
  Serious: No
  Sender: FDA-Public Use
  Company Number: US-PFIZER INC-2012020379

PATIENT
  Sex: Female
  Weight: 45.351 kg

DRUGS (2)
  1. CHANTIX [Suspect]
     Indication: SMOKING CESSATION THERAPY
     Dosage: UNK
     Dates: start: 20120101
  2. LOESTRIN FE 1/20 [Concomitant]
     Indication: CONTRACEPTION
     Dosage: 1 MG, DAILY

REACTIONS (2)
  - VOMITING [None]
  - NAUSEA [None]
